FAERS Safety Report 15128253 (Version 2)
Quarter: 2018Q3

REPORT INFORMATION
  Report Type: Spontaneous
  Country: US (occurrence: US)
  Receive Date: 20180711
  Receipt Date: 20180801
  Transmission Date: 20181010
  Serious: Yes (Other)
  Sender: FDA-Public Use
  Company Number: US-CELGENEUS-USA-20180702061

PATIENT
  Age: 57 Year
  Sex: Male

DRUGS (4)
  1. IXAZOMIB [Concomitant]
     Active Substance: IXAZOMIB
     Indication: PLASMA CELL MYELOMA
     Dosage: 4 MILLIGRAM
     Route: 048
     Dates: start: 201806, end: 2018
  2. ONDANSETRON [Concomitant]
     Active Substance: ONDANSETRON
     Indication: VOMITING
  3. REVLIMID [Suspect]
     Active Substance: LENALIDOMIDE
     Indication: PLASMA CELL MYELOMA
     Dosage: 20 MILLIGRAM
     Route: 048
     Dates: start: 201806, end: 20180709
  4. ONDANSETRON [Concomitant]
     Active Substance: ONDANSETRON
     Indication: NAUSEA
     Dosage: 8 MILLIGRAM
     Route: 065
     Dates: start: 201806, end: 2018

REACTIONS (4)
  - Neutropenia [Recovering/Resolving]
  - Dry eye [Recovering/Resolving]
  - Eye pruritus [Recovering/Resolving]
  - Vision blurred [Unknown]

NARRATIVE: CASE EVENT DATE: 20180701
